FAERS Safety Report 25907642 (Version 1)
Quarter: 2025Q4

REPORT INFORMATION
  Report Type: Spontaneous
  Country: US (occurrence: None)
  Receive Date: 20251010
  Receipt Date: 20251010
  Transmission Date: 20260117
  Serious: No
  Sender: FDA-CTU
  Company Number: None

PATIENT
  Sex: Male

DRUGS (11)
  1. SANDOSTATIN LAR DEPOT [Suspect]
     Active Substance: OCTREOTIDE ACETATE
     Indication: Hepatic cancer
     Dosage: INJECT 40 MG IN THE MUSCLE EVERY 4 WEEKS
     Route: 030
     Dates: start: 20220824
  2. AFINITOR [Concomitant]
     Active Substance: EVEROLIMUS
  3. AML0DIPINE TAB 10MG [Concomitant]
  4. AML0DIPINE TAB5MG [Concomitant]
  5. CREST0R TAB 10MG [Concomitant]
  6. FISH OIL CAP 1000MG [Concomitant]
  7. MULTIPLE VIT TAB [Concomitant]
  8. NEXIUM CAP 20MG [Concomitant]
  9. 0NDANSETR0N TAB 8MG [Concomitant]
  10. R0SUVASTATIN TAB 10MG [Concomitant]
  11. SILDENAFIL TAB 100MG [Concomitant]

REACTIONS (1)
  - Ulcer [None]
